FAERS Safety Report 18170501 (Version 1)
Quarter: 2020Q3

REPORT INFORMATION
  Report Type: Spontaneous
  Country: CN (occurrence: CN)
  Receive Date: 20200819
  Receipt Date: 20200819
  Transmission Date: 20201103
  Serious: Yes (Hospitalization, Other)
  Sender: FDA-Public Use
  Company Number: CN-PFIZER INC-2020317636

PATIENT
  Age: 70 Year
  Sex: Male
  Weight: 70 kg

DRUGS (3)
  1. VFEND [Suspect]
     Active Substance: VORICONAZOLE
     Indication: INFECTION
     Dosage: 0.2 G, 2X/DAY
     Route: 041
     Dates: start: 20200729, end: 20200801
  2. SODIUM CHLORIDE. [Concomitant]
     Active Substance: SODIUM CHLORIDE
     Dosage: 100 ML, 2X/DAY
     Route: 041
     Dates: start: 20200728, end: 20200801
  3. VFEND [Suspect]
     Active Substance: VORICONAZOLE
     Indication: BRONCHITIS CHRONIC
     Dosage: 0.4 G, 2X/DAY
     Route: 041
     Dates: start: 20200728, end: 20200728

REACTIONS (6)
  - Halo vision [Recovered/Resolved]
  - Off label use [Unknown]
  - Delirium [Recovered/Resolved]
  - Insomnia [Recovered/Resolved]
  - Visual impairment [Recovered/Resolved]
  - Visual field defect [Recovered/Resolved]

NARRATIVE: CASE EVENT DATE: 20200728
